FAERS Safety Report 15952137 (Version 1)
Quarter: 2019Q1

REPORT INFORMATION
  Report Type: Spontaneous
  Country: US (occurrence: US)
  Receive Date: 20190212
  Receipt Date: 20190212
  Transmission Date: 20190417
  Serious: No
  Sender: FDA-Public Use
  Company Number: US-SA-2019SA036935

PATIENT
  Age: 56 Year
  Sex: Male

DRUGS (2)
  1. PRALUENT [Suspect]
     Active Substance: ALIROCUMAB
     Dosage: 150 MG
     Dates: start: 20170126
  2. BRILINTA [Suspect]
     Active Substance: TICAGRELOR

REACTIONS (2)
  - Gout [Unknown]
  - Product dose omission [Unknown]

NARRATIVE: CASE EVENT DATE: 20190128
